FAERS Safety Report 11144419 (Version 1)
Quarter: 2015Q2

REPORT INFORMATION
  Report Type: Spontaneous
  Country: US (occurrence: US)
  Receive Date: 20150526
  Receipt Date: 20150526
  Transmission Date: 20150821
  Serious: No
  Sender: FDA-Public Use
  Company Number: US-PFIZER INC-2015034657

PATIENT
  Age: 55 Year
  Sex: Male

DRUGS (1)
  1. RELPAX [Suspect]
     Active Substance: ELETRIPTAN HYDROBROMIDE
     Indication: MIGRAINE
     Dosage: 40 MG, UNK (1 TO START 1 MORE AFTER 3HRS, NO MORE THAN 2 IN 24HRS)
     Dates: start: 20150109

REACTIONS (1)
  - Drug ineffective [Unknown]
